FAERS Safety Report 15702184 (Version 3)
Quarter: 2019Q1

REPORT INFORMATION
  Report Type: Spontaneous
  Country: US (occurrence: US)
  Receive Date: 20181209
  Receipt Date: 20190319
  Transmission Date: 20190417
  Serious: Yes (Hospitalization, Other)
  Sender: FDA-Public Use
  Company Number: US-BRISTOL-MYERS SQUIBB COMPANY-BMS-2018-112574

PATIENT
  Age: 62 Year
  Sex: Male
  Weight: 95.24 kg

DRUGS (2)
  1. ORENCIA [Suspect]
     Active Substance: ABATACEPT
     Indication: RHEUMATOID ARTHRITIS
     Dosage: 125 MILLIGRAM, QWK AS DIRECTED
     Route: 058
     Dates: start: 201810
  2. ORENCIA [Suspect]
     Active Substance: ABATACEPT
     Indication: OSTEOPOROSIS
     Route: 065

REACTIONS (4)
  - Prostate infection [Unknown]
  - Drug ineffective [Unknown]
  - Pain in extremity [Unknown]
  - Headache [Unknown]

NARRATIVE: CASE EVENT DATE: 20181127
